FAERS Safety Report 5860398-4 (Version None)
Quarter: 2008Q3

REPORT INFORMATION
  Report Type: 
  Country: None (occurrence: None)
  Receive Date: 20080827
  Receipt Date: 20080815
  Transmission Date: 20090109
  Serious: Yes (Other)
  Sender: FDA-Public Use
  Company Number: US-AMGEN-QUU301580

PATIENT
  Sex: Female

DRUGS (6)
  1. EPOGEN [Suspect]
     Indication: ANAEMIA OF MALIGNANT DISEASE
     Route: 058
     Dates: start: 20080223, end: 20080809
  2. CYCLOSPORINE [Concomitant]
  3. CARBOPLATIN [Concomitant]
  4. ETOPOSIDE [Concomitant]
  5. VINCRISTINE [Concomitant]
  6. IRON [Concomitant]

REACTIONS (4)
  - CYANOSIS NEONATAL [None]
  - LETHARGY [None]
  - RASH [None]
  - URTICARIA [None]
